FAERS Safety Report 23242741 (Version 1)
Quarter: 2023Q4

REPORT INFORMATION
  Report Type: Report from Study
  Country: CN (occurrence: CN)
  Receive Date: 20231129
  Receipt Date: 20231129
  Transmission Date: 20240109
  Serious: Yes (Other)
  Sender: FDA-Public Use
  Company Number: CN-JNJFOC-20230444398

PATIENT

DRUGS (1)
  1. RISPERDAL [Suspect]
     Active Substance: RISPERIDONE
     Indication: Product used for unknown indication
     Route: 065

REACTIONS (37)
  - Arrhythmia [Unknown]
  - Bradycardia [Unknown]
  - Thrombocytopenia [Unknown]
  - Urinary retention [Unknown]
  - Seizure [Unknown]
  - Extrapyramidal disorder [Unknown]
  - Autonomic nervous system imbalance [Unknown]
  - Somnolence [Unknown]
  - Anxiety [Unknown]
  - Dizziness [Unknown]
  - Language disorder [Unknown]
  - Fatigue [Unknown]
  - Asthenia [Unknown]
  - Rash [Unknown]
  - Pruritus [Unknown]
  - Flushing [Unknown]
  - Dermatitis [Unknown]
  - Constipation [Unknown]
  - Vomiting [Unknown]
  - Eructation [Unknown]
  - Abdominal distension [Unknown]
  - Dysuria [Unknown]
  - White blood cell count decreased [Unknown]
  - Visual impairment [Unknown]
  - Vision blurred [Unknown]
  - Blood pressure decreased [Unknown]
  - Blood pressure increased [Unknown]
  - Oedema [Unknown]
  - Chest discomfort [Unknown]
  - Palpitations [Unknown]
  - Menstrual disorder [Unknown]
  - Hypersensitivity [Unknown]
  - Chills [Unknown]
  - Pyrexia [Unknown]
  - Temperature intolerance [Unknown]
  - Condition aggravated [Unknown]
  - Off label use [Unknown]
